FAERS Safety Report 7905943-X (Version None)
Quarter: 2011Q4

REPORT INFORMATION
  Report Type: 
  Country: None (occurrence: None)
  Receive Date: 20111110
  Receipt Date: 20111102
  Transmission Date: 20120403
  Serious: Yes (Death, Hospitalization)
  Sender: FDA-Public Use
  Company Number: JP-BAYER-2011-104200

PATIENT
  Age: 69 Year
  Sex: Female

DRUGS (9)
  1. NEXAVAR [Suspect]
     Indication: HEPATIC NEOPLASM MALIGNANT
     Dosage: 400 MG, BID
     Route: 048
     Dates: start: 20111011, end: 20111024
  2. ALLEGRA [Concomitant]
     Indication: ECZEMA
     Dosage: DAILY DOSE 120 MG
     Route: 048
     Dates: start: 20090801, end: 20111024
  3. LASIX [Concomitant]
     Dosage: DAILY DOSE 60 MG
     Route: 048
     Dates: start: 20111020, end: 20111024
  4. NEXAVAR [Suspect]
  5. URSO 250 [Concomitant]
     Indication: CHRONIC HEPATITIS
     Dosage: DAILY DOSE 600 MG
     Route: 048
     Dates: start: 20090801, end: 20111024
  6. ALDACTONE [Concomitant]
     Indication: ASCITES
     Dosage: DAILY DOSE 25 MG
     Route: 048
     Dates: start: 20090801, end: 20111019
  7. LASIX [Concomitant]
     Indication: ASCITES
     Dosage: DAILY DOSE 20 MG
     Route: 048
     Dates: start: 20090801, end: 20111019
  8. GLAKAY [Concomitant]
     Indication: OSTEOPOROSIS
     Dosage: DAILY DOSE 30 MG
     Route: 048
     Dates: start: 20091101, end: 20111024
  9. LANSOPRAZOLE [Concomitant]
     Indication: GASTRITIS
     Dosage: DAILY DOSE 30 MG
     Route: 048
     Dates: start: 20090801, end: 20111024

REACTIONS (5)
  - HYPOPHAGIA [None]
  - PALMAR-PLANTAR ERYTHRODYSAESTHESIA SYNDROME [None]
  - RENAL FAILURE [None]
  - HEPATIC FAILURE [None]
  - DEPRESSED LEVEL OF CONSCIOUSNESS [None]
